FAERS Safety Report 7201396-8 (Version None)
Quarter: 2010Q4

REPORT INFORMATION
  Report Type: 
  Country: None (occurrence: None)
  Receive Date: 20101221
  Receipt Date: 20101221
  Transmission Date: 20110411
  Serious: Yes (Life-Threatening, Other)
  Sender: FDA-Public Use
  Company Number: None

PATIENT
  Age: 42 Year
  Sex: Female
  Weight: 78.4723 kg

DRUGS (1)
  1. BUPROPRION SR 150 MG TABLET EON LABS [Suspect]
     Indication: DEPRESSION
     Dosage: 1 TABLET DAILY PO ABOUT 1 TO 2 WEEKS
     Route: 048

REACTIONS (4)
  - DEPRESSION [None]
  - DISORIENTATION [None]
  - PRODUCT FORMULATION ISSUE [None]
  - SOMNOLENCE [None]
